FAERS Safety Report 5422994-8 (Version None)
Quarter: 2007Q3

REPORT INFORMATION
  Report Type: 
  Country: None (occurrence: None)
  Receive Date: 20070822
  Receipt Date: 20070817
  Transmission Date: 20080115
  Serious: Yes (Hospitalization)
  Sender: FDA-Public Use
  Company Number: US-MERCK-0707USA01779

PATIENT
  Sex: Female
  Weight: 227 kg

DRUGS (8)
  1. JANUVIA [Suspect]
     Indication: DIABETES MELLITUS
     Route: 048
     Dates: start: 20070626, end: 20070701
  2. [THERAPY UNSPECIFIED] [Concomitant]
     Route: 065
  3. MORPHINE [Suspect]
     Route: 065
  4. MS CONTIN [Suspect]
     Route: 065
  5. AMBIEN [Suspect]
     Route: 065
  6. CYMBALTA [Suspect]
     Route: 065
  7. LANTUS [Concomitant]
     Route: 065
  8. INSULIN LISPRO [Concomitant]
     Route: 065

REACTIONS (4)
  - AGITATION [None]
  - BLOOD GLUCOSE INCREASED [None]
  - MULTIPLE DRUG OVERDOSE [None]
  - UNRESPONSIVE TO STIMULI [None]
